FAERS Safety Report 14017521 (Version 8)
Quarter: 2018Q4

REPORT INFORMATION
  Report Type: Spontaneous
  Country: US (occurrence: US)
  Receive Date: 20170927
  Receipt Date: 20181221
  Transmission Date: 20190204
  Serious: Yes (Other)
  Sender: FDA-Public Use
  Company Number: US-GLAXOSMITHKLINE-US2017GSK148017

PATIENT
  Age: 84 Year
  Sex: Female

DRUGS (7)
  1. RYTHMOL SR [Suspect]
     Active Substance: PROPAFENONE HYDROCHLORIDE
     Indication: ATRIAL FIBRILLATION
     Dosage: 450 MG, QD
     Dates: start: 2011
  2. RYTHMOL SR [Suspect]
     Active Substance: PROPAFENONE HYDROCHLORIDE
     Dosage: 325 MG, U
  3. RYTHMOL SR [Suspect]
     Active Substance: PROPAFENONE HYDROCHLORIDE
     Dosage: 225 MG, U
  4. RYTHMOL SR [Suspect]
     Active Substance: PROPAFENONE HYDROCHLORIDE
     Dosage: 360 MG, BID
     Route: 048
  5. IBRANCE [Concomitant]
     Active Substance: PALBOCICLIB
  6. RYTHMOL SR [Suspect]
     Active Substance: PROPAFENONE HYDROCHLORIDE
     Dosage: 325 MG, UNK
  7. RYTHMOL SR [Suspect]
     Active Substance: PROPAFENONE HYDROCHLORIDE
     Indication: CARDIAC DISORDER
     Dosage: 675 MG, QD

REACTIONS (4)
  - Breast cancer recurrent [Unknown]
  - Drug ineffective [Unknown]
  - Breast cancer metastatic [Unknown]
  - Metastases to spine [Unknown]

NARRATIVE: CASE EVENT DATE: 201707
